FAERS Safety Report 12826703 (Version 1)
Quarter: 2016Q4

REPORT INFORMATION
  Report Type: Spontaneous
  Country: US (occurrence: US)
  Receive Date: 20161006
  Receipt Date: 20161006
  Transmission Date: 20170207
  Serious: No
  Sender: FDA-Public Use
  Company Number: US-ELI_LILLY_AND_COMPANY-US201610000781

PATIENT
  Age: 71 Year
  Sex: Male

DRUGS (3)
  1. HUMALOG [Suspect]
     Active Substance: INSULIN LISPRO
     Dosage: 8 U, AT DINNER
     Route: 065
     Dates: start: 201604
  2. HUMALOG [Suspect]
     Active Substance: INSULIN LISPRO
     Dosage: 8 U, AT LUNCH
     Route: 065
     Dates: start: 201604
  3. HUMALOG [Suspect]
     Active Substance: INSULIN LISPRO
     Indication: TYPE 2 DIABETES MELLITUS
     Dosage: 9 U, AT BREAKFAST
     Route: 065
     Dates: start: 201604

REACTIONS (1)
  - Accidental underdose [Unknown]

NARRATIVE: CASE EVENT DATE: 20161003
